FAERS Safety Report 12331468 (Version 1)
Quarter: 2016Q2

REPORT INFORMATION
  Report Type: Spontaneous
  Country: US (occurrence: None)
  Receive Date: 20160503
  Receipt Date: 20160503
  Transmission Date: 20160815
  Serious: Yes (Life-Threatening, Hospitalization)
  Sender: FDA-Public Use
  Company Number: None

PATIENT
  Age: 59 Year
  Sex: Male
  Weight: 108.41 kg

DRUGS (19)
  1. SPIRIVA [Concomitant]
     Active Substance: TIOTROPIUM BROMIDE MONOHYDRATE
  2. ZETIA [Concomitant]
     Active Substance: EZETIMIBE
  3. ALBUTEROL. [Concomitant]
     Active Substance: ALBUTEROL
  4. BREO ELLIPTA [Suspect]
     Active Substance: FLUTICASONE FUROATE\VILANTEROL TRIFENATATE
     Indication: BRONCHITIS
     Dosage: 2 PUFF(S) ONCE A DAY TAKEN BY MOUTH
     Route: 048
     Dates: start: 20160301, end: 20160311
  5. DILACOR XR [Concomitant]
     Active Substance: DILTIAZEM HYDROCHLORIDE
  6. IMDUR [Concomitant]
     Active Substance: ISOSORBIDE MONONITRATE
  7. RESVERATOL  ANTIOXIDANT SUPPLEMENT [Concomitant]
  8. PLAVIX [Concomitant]
     Active Substance: CLOPIDOGREL BISULFATE
  9. LIPITOR [Concomitant]
     Active Substance: ATORVASTATIN CALCIUM
  10. TOPROL XL [Concomitant]
     Active Substance: METOPROLOL SUCCINATE
  11. INDICIN  XR [Concomitant]
  12. FLOVENT [Concomitant]
     Active Substance: FLUTICASONE PROPIONATE
  13. MEDTRONIC DEFIBRILLATION [Concomitant]
  14. ASPIRIN. [Concomitant]
     Active Substance: ASPIRIN
  15. MULTIVITAMIN [Concomitant]
     Active Substance: VITAMINS
  16. BUSPIRONE [Concomitant]
     Active Substance: BUSPIRONE HYDROCHLORIDE
  17. KRILL OIL SUPPLEMENT [Concomitant]
  18. FIBER SUPPLEMENT [Concomitant]
  19. MEGARED OMEGA 3 [Concomitant]

REACTIONS (5)
  - Conduction disorder [None]
  - Chest discomfort [None]
  - Cardiac arrest [None]
  - Heart rate irregular [None]
  - Electrocardiogram QT prolonged [None]

NARRATIVE: CASE EVENT DATE: 20160311
